FAERS Safety Report 8622503-6 (Version None)
Quarter: 2012Q3

REPORT INFORMATION
  Report Type: 
  Country: None (occurrence: None)
  Receive Date: 20120827
  Receipt Date: 20120821
  Transmission Date: 20120928
  Serious: No
  Sender: FDA-Public Use
  Company Number: US-PFIZER INC-2012205176

PATIENT
  Age: 33 Year
  Sex: Female
  Weight: 68.027 kg

DRUGS (1)
  1. ADVIL PM [Suspect]
     Indication: SLEEP DISORDER
     Dosage: UNK
     Dates: start: 20120801, end: 20120801

REACTIONS (6)
  - FATIGUE [None]
  - DIZZINESS [None]
  - FEELING ABNORMAL [None]
  - HEADACHE [None]
  - VISION BLURRED [None]
  - CONSTIPATION [None]
